FAERS Safety Report 10459503 (Version 2)
Quarter: 2014Q4

REPORT INFORMATION
  Report Type: Spontaneous
  Country: FR (occurrence: FR)
  Receive Date: 20140917
  Receipt Date: 20141008
  Transmission Date: 20150528
  Serious: Yes (Other)
  Sender: FDA-Public Use
  Company Number: FR-MERCK-1409FRA006372

PATIENT
  Age: 51 Year
  Sex: Male
  Weight: 82 kg

DRUGS (5)
  1. VESICARE [Concomitant]
     Active Substance: SOLIFENACIN SUCCINATE
     Indication: HYPERTONIC BLADDER
  2. INVANZ [Suspect]
     Active Substance: ERTAPENEM SODIUM
     Indication: ESCHERICHIA URINARY TRACT INFECTION
  3. INVANZ [Suspect]
     Active Substance: ERTAPENEM SODIUM
     Indication: PROSTATE INFECTION
     Dosage: UNK
     Route: 042
     Dates: start: 2014, end: 2014
  4. VESICARE [Concomitant]
     Active Substance: SOLIFENACIN SUCCINATE
     Indication: URINARY TRACT DISORDER
     Dosage: 10 MG, QD
     Dates: start: 201010
  5. INVANZ [Suspect]
     Active Substance: ERTAPENEM SODIUM
     Indication: URINARY TRACT INFECTION
     Dosage: 1 G /DAILY
     Route: 042
     Dates: start: 20140829, end: 20140909

REACTIONS (3)
  - Product use issue [Recovered/Resolved]
  - Renal failure [Unknown]
  - Renal failure [Recovered/Resolved]

NARRATIVE: CASE EVENT DATE: 201405
